FAERS Safety Report 24329731 (Version 4)
Quarter: 2025Q1

REPORT INFORMATION
  Report Type: Spontaneous
  Country: US (occurrence: US)
  Receive Date: 20240917
  Receipt Date: 20250324
  Transmission Date: 20250408
  Serious: Yes (Other)
  Sender: SANOFI AVENTIS
  Company Number: US-SA-2024SA267777

PATIENT
  Age: 60 Year
  Sex: Male
  Weight: 96.82 kg

DRUGS (2)
  1. DUPIXENT [Suspect]
     Active Substance: DUPILUMAB
     Indication: Asthma
     Dosage: 300 MG, QOW
     Route: 058
     Dates: start: 20240712
  2. IBUPROFEN [Suspect]
     Active Substance: IBUPROFEN
     Indication: Pain
     Dates: start: 202503

REACTIONS (7)
  - Neuropathy peripheral [Unknown]
  - Stress [Unknown]
  - Pain [Unknown]
  - Restless legs syndrome [Unknown]
  - Respiration abnormal [Unknown]
  - Injection site urticaria [Recovered/Resolved]
  - Injection site pain [Not Recovered/Not Resolved]

NARRATIVE: CASE EVENT DATE: 20240101
